FAERS Safety Report 22636667 (Version 3)
Quarter: 2023Q4

REPORT INFORMATION
  Report Type: Spontaneous
  Country: US (occurrence: US)
  Receive Date: 20230623
  Receipt Date: 20231013
  Transmission Date: 20240110
  Serious: Yes (Disabling)
  Sender: FDA-Public Use
  Company Number: US-TEVA-2023-US-2900974

PATIENT
  Age: 54 Year
  Sex: Female

DRUGS (4)
  1. DOCETAXEL [Suspect]
     Active Substance: DOCETAXEL
     Indication: Breast cancer female
     Dosage: NUMBER OF CYCLE - 04, FREQUENCY- EVERY 3 WEEKS WITH DOSE: UNKNOWN
     Route: 065
     Dates: start: 201607, end: 201610
  2. CYTOXAN [Suspect]
     Active Substance: CYCLOPHOSPHAMIDE
     Indication: Breast cancer female
     Dosage: NUMBER OF CYCLE - 04, FREQUENCY- EVERY 3 WEEKS DOSE: UNKNOWN
     Route: 065
     Dates: start: 201607, end: 201610
  3. TAXOTERE [Suspect]
     Active Substance: DOCETAXEL
     Indication: Breast cancer female
     Route: 065
  4. FEMARA [Concomitant]
     Active Substance: LETROZOLE
     Indication: Product used for unknown indication
     Route: 065
     Dates: start: 2016

REACTIONS (12)
  - Lacrimal structure injury [Unknown]
  - Lacrimation increased [Recovered/Resolved]
  - Photophobia [Not Recovered/Not Resolved]
  - Eye pruritus [Unknown]
  - Dacryostenosis acquired [Recovered/Resolved]
  - Vision blurred [Recovered/Resolved]
  - Visual impairment [Recovered/Resolved]
  - Dry eye [Recovered/Resolved]
  - Eye irritation [Recovered/Resolved]
  - Eye infection [Recovered/Resolved]
  - Foreign body sensation in eyes [Recovered/Resolved]
  - Swelling of eyelid [Recovered/Resolved]

NARRATIVE: CASE EVENT DATE: 20160101
